FAERS Safety Report 6173872-0 (Version None)
Quarter: 2009Q2

REPORT INFORMATION
  Report Type: 
  Country: None (occurrence: None)
  Receive Date: 20090429
  Receipt Date: 20090429
  Transmission Date: 20091009
  Serious: Yes (Other)
  Sender: FDA-Public Use
  Company Number: None

PATIENT
  Age: 41 Year
  Sex: Male
  Weight: 81.6475 kg

DRUGS (6)
  1. BUPROPION HCL [Suspect]
     Indication: UNEVALUABLE EVENT
     Dosage: 150MG Q DAY PO
     Route: 048
     Dates: start: 20090405, end: 20090408
  2. METHADONE HCL [Concomitant]
  3. SOMA [Concomitant]
  4. RELAFEN [Concomitant]
  5. VYTORIN [Concomitant]
  6. CITALOPRAM HYDROBROMIDE [Concomitant]

REACTIONS (14)
  - AFFECTIVE DISORDER [None]
  - COGNITIVE DISORDER [None]
  - DECREASED APPETITE [None]
  - DEPRESSION [None]
  - DISTURBANCE IN ATTENTION [None]
  - FEAR [None]
  - HYPERSOMNIA [None]
  - MEMORY IMPAIRMENT [None]
  - MIGRAINE [None]
  - POVERTY OF THOUGHT CONTENT [None]
  - PSYCHOMOTOR RETARDATION [None]
  - SOCIAL AVOIDANT BEHAVIOUR [None]
  - SPEECH DISORDER [None]
  - TOBACCO USER [None]
